FAERS Safety Report 25515452 (Version 1)
Quarter: 2025Q3

REPORT INFORMATION
  Report Type: Spontaneous
  Country: EU (occurrence: EU)
  Receive Date: 20250704
  Receipt Date: 20250704
  Transmission Date: 20251020
  Serious: Yes (Other)
  Sender: ABBVIE
  Company Number: EU-TEVA-VS-3345323

PATIENT
  Age: 29 Year
  Sex: Female
  Weight: 56 kg

DRUGS (2)
  1. DEXAMETHASONE [Suspect]
     Active Substance: DEXAMETHASONE
     Indication: Product used for unknown indication
     Route: 050
  2. LEUPROLIDE ACETATE [Suspect]
     Active Substance: LEUPROLIDE ACETATE
     Indication: Hormone therapy
     Route: 065

REACTIONS (6)
  - Circulatory collapse [Unknown]
  - Hot flush [Recovering/Resolving]
  - Weight increased [Unknown]
  - Depression [Unknown]
  - Blood pressure decreased [Unknown]
  - Bronchospasm [Unknown]
